FAERS Safety Report 4375811-1 (Version None)
Quarter: 2004Q2

REPORT INFORMATION
  Report Type: 
  Country: None (occurrence: None)
  Receive Date: 20040607
  Receipt Date: 20040525
  Transmission Date: 20050107
  Serious: Yes (Hospitalization)
  Sender: FDA-Public Use
  Company Number: 8006372

PATIENT
  Age: 65 Year
  Sex: Male

DRUGS (1)
  1. KEPPRA [Suspect]
     Dosage: 3000 MG /D

REACTIONS (1)
  - PHOTOSENSITIVITY REACTION [None]
